FAERS Safety Report 13334308 (Version 1)
Quarter: 2017Q1

REPORT INFORMATION
  Report Type: Spontaneous
  Country: DE (occurrence: DE)
  Receive Date: 20170314
  Receipt Date: 20170314
  Transmission Date: 20170428
  Serious: Yes (Life-Threatening, Hospitalization)
  Sender: FDA-Public Use
  Company Number: DE-PFIZER INC-2017107584

PATIENT
  Age: 85 Year
  Sex: Female

DRUGS (8)
  1. AMLODIPIN [Concomitant]
     Active Substance: AMLODIPINE BESYLATE
  2. BISOPROLOL [Concomitant]
     Active Substance: BISOPROLOL
  3. METHOTREXATE SODIUM. [Suspect]
     Active Substance: METHOTREXATE SODIUM
     Dosage: UNK
  4. PREDNISOLON [Concomitant]
     Active Substance: PREDNISOLONE
  5. NOVAMINSULFON-RATIOPHARM [Interacting]
     Active Substance: METAMIZOLE
     Indication: PAIN
     Dosage: UNK
  6. MOXONIDIN [Concomitant]
     Active Substance: MOXONIDINE
  7. PANTOPRAZOL [Concomitant]
     Active Substance: PANTOPRAZOLE SODIUM
     Dosage: UNK
  8. TILIDIN/NALOXON [Concomitant]

REACTIONS (2)
  - Drug interaction [Recovering/Resolving]
  - Agranulocytosis [Recovering/Resolving]

NARRATIVE: CASE EVENT DATE: 20170123
